FAERS Safety Report 9160685 (Version 1)
Quarter: 2013Q1

REPORT INFORMATION
  Report Type: Spontaneous
  Country: GB (occurrence: None)
  Receive Date: 20130222
  Receipt Date: 20130222
  Transmission Date: 20140127
  Serious: Yes (Other)
  Sender: FDA-Public Use
  Company Number: KAD201302-000221

PATIENT
  Age: 48 Year
  Sex: Male

DRUGS (3)
  1. RIBAVIRIN [Suspect]
     Indication: HEPATITIS C
     Route: 048
     Dates: start: 20120919
  2. PEGINTERFERON ALFA-2B [Suspect]
     Indication: HEPATITIS C
     Route: 058
     Dates: start: 20120919
  3. TELAPREVIR (TELAPREVIR) [Suspect]
     Indication: HEPATITIS C
     Route: 048
     Dates: start: 20120919

REACTIONS (13)
  - Decreased interest [None]
  - Depression [None]
  - Depressed mood [None]
  - Malaise [None]
  - Haemorrhoidal haemorrhage [None]
  - Headache [None]
  - Lethargy [None]
  - Mood swings [None]
  - Nausea [None]
  - Rash pruritic [None]
  - Fatigue [None]
  - Rash macular [None]
  - Rash generalised [None]
